FAERS Safety Report 18957644 (Version 1)
Quarter: 2021Q1

REPORT INFORMATION
  Report Type: Spontaneous
  Country: US (occurrence: US)
  Receive Date: 20210301
  Receipt Date: 20210301
  Transmission Date: 20210420
  Serious: Yes (Death)
  Sender: FDA-Public Use
  Company Number: None

PATIENT
  Age: 90 Year
  Sex: Male

DRUGS (1)
  1. CALQUENCE [Suspect]
     Active Substance: ACALABRUTINIB
     Indication: LEUKAEMIA
     Route: 048
     Dates: start: 20201210, end: 20210301

REACTIONS (1)
  - Death [None]

NARRATIVE: CASE EVENT DATE: 20210301
